FAERS Safety Report 14763010 (Version 1)
Quarter: 2018Q2

REPORT INFORMATION
  Report Type: Spontaneous
  Country: US (occurrence: US)
  Receive Date: 20180416
  Receipt Date: 20180416
  Transmission Date: 20180711
  Serious: Yes (Death, Hospitalization)
  Sender: FDA-Public Use
  Company Number: US-SUN PHARMACEUTICAL INDUSTRIES LTD-2018US-165352

PATIENT
  Sex: Female

DRUGS (1)
  1. METHOTREXATE. [Suspect]
     Active Substance: METHOTREXATE
     Indication: ARTHRITIS
     Dosage: 8 DF, 1/WEEK
     Route: 065
     Dates: start: 201708

REACTIONS (8)
  - Off label use [Unknown]
  - Dizziness [Unknown]
  - Diarrhoea [Unknown]
  - White blood cell count decreased [Unknown]
  - Brain death [Fatal]
  - Myocardial infarction [Fatal]
  - Haemoglobin decreased [Unknown]
  - Constipation [Unknown]

NARRATIVE: CASE EVENT DATE: 2017
